FAERS Safety Report 5849173-4 (Version None)
Quarter: 2008Q3

REPORT INFORMATION
  Report Type: 
  Country: None (occurrence: None)
  Receive Date: 20080819
  Receipt Date: 20080807
  Transmission Date: 20090109
  Serious: Yes (Other)
  Sender: FDA-Public Use
  Company Number: US-JNJFOC-20080802070

PATIENT
  Sex: Female

DRUGS (9)
  1. DURAGESIC-100 [Suspect]
     Indication: PAIN
     Route: 062
  2. ASPIRIN [Concomitant]
     Dosage: 1 TABLET
     Route: 048
  3. MOBIC [Concomitant]
     Indication: PAIN
     Route: 048
  4. LASIX [Concomitant]
     Indication: SWELLING
     Route: 048
  5. MOEXIPRIL HCL [Concomitant]
     Indication: BLOOD PRESSURE
     Route: 048
  6. ADVAIN [Concomitant]
     Indication: RESPIRATORY DISORDER
     Dosage: 1 PUFF 2 TIMES PER DAY
     Route: 048
  7. ALBUTEROL [Concomitant]
     Indication: RESPIRATORY DISORDER
     Dosage: 1 PUFF AS NEEDED
     Route: 048
  8. BENADRYL [Concomitant]
     Indication: SINUS DISORDER
     Route: 048
  9. CLARITIN [Concomitant]
     Indication: SINUS DISORDER
     Route: 048

REACTIONS (4)
  - BODY HEIGHT DECREASED [None]
  - CATARACT [None]
  - GLAUCOMA [None]
  - WRONG TECHNIQUE IN DRUG USAGE PROCESS [None]
